FAERS Safety Report 6871087-1 (Version None)
Quarter: 2010Q3

REPORT INFORMATION
  Report Type: 
  Country: None (occurrence: None)
  Receive Date: 20100723
  Receipt Date: 20100714
  Transmission Date: 20110219
  Serious: Yes (Hospitalization, Other)
  Sender: FDA-Public Use
  Company Number: US-JNJCH-2009031697

PATIENT
  Age: 6 Month
  Sex: Female

DRUGS (1)
  1. ASPIRIN [Suspect]
     Indication: KAWASAKI'S DISEASE
     Dosage: TEXT:125 MG/KG DAILY FOR 17 DAYS
     Route: 048

REACTIONS (2)
  - THERAPEUTIC AGENT TOXICITY [None]
  - WRONG DRUG ADMINISTERED [None]
